FAERS Safety Report 22170666 (Version 1)
Quarter: 2023Q2

REPORT INFORMATION
  Report Type: Spontaneous
  Country: GB (occurrence: GB)
  Receive Date: 20230404
  Receipt Date: 20230404
  Transmission Date: 20230722
  Serious: Yes (Other)
  Sender: FDA-Public Use
  Company Number: GB-MHRA-MED-202303180915129820-QHKTB

PATIENT
  Sex: Female

DRUGS (6)
  1. FEXOFENADINE HYDROCHLORIDE [Suspect]
     Active Substance: FEXOFENADINE HYDROCHLORIDE
     Indication: Product used for unknown indication
     Route: 048
     Dates: start: 20120101
  2. FEXOFENADINE HYDROCHLORIDE [Suspect]
     Active Substance: FEXOFENADINE HYDROCHLORIDE
     Route: 048
     Dates: end: 20230318
  3. PROBIOTICS NOS [Concomitant]
     Active Substance: PROBIOTICS NOS
     Indication: Product used for unknown indication
  4. VITAMINS [Concomitant]
     Active Substance: VITAMINS
     Indication: Product used for unknown indication
  5. EVENING PRIMROSE OIL\HERBALS [Concomitant]
     Active Substance: EVENING PRIMROSE OIL\HERBALS
     Indication: Menopause
  6. VITAMIN D [Concomitant]
     Active Substance: VITAMIN D NOS
     Indication: Product used for unknown indication

REACTIONS (5)
  - Photosensitivity reaction [Unknown]
  - Swollen tongue [Unknown]
  - Rash erythematous [Not Recovered/Not Resolved]
  - Pruritus [Unknown]
  - Therapeutic product effect decreased [Not Recovered/Not Resolved]
